FAERS Safety Report 8437512-X (Version None)
Quarter: 2012Q2

REPORT INFORMATION
  Report Type: 
  Country: None (occurrence: None)
  Receive Date: 20120614
  Receipt Date: 20120412
  Transmission Date: 20120825
  Serious: No
  Sender: FDA-Public Use
  Company Number: US-AMGEN-USASP2012023265

PATIENT
  Age: 59 Year
  Sex: Female

DRUGS (1)
  1. PROLIA [Suspect]
     Indication: OSTEOPOROSIS POSTMENOPAUSAL
     Dosage: 60 MG, Q6MO
     Dates: start: 20110101

REACTIONS (6)
  - TOOTH LOSS [None]
  - PAIN IN EXTREMITY [None]
  - ORAL INFECTION [None]
  - PAIN IN JAW [None]
  - TOOTHACHE [None]
  - EAR PAIN [None]
